FAERS Safety Report 4386211-2 (Version None)
Quarter: 2004Q2

REPORT INFORMATION
  Report Type: 
  Country: None (occurrence: None)
  Receive Date: 20040623
  Receipt Date: 20040614
  Transmission Date: 20050107
  Serious: Yes (Life-Threatening, Hospitalization)
  Sender: FDA-Public Use
  Company Number: 2004PK01024

PATIENT
  Age: 75 Year
  Sex: Male
  Weight: 89 kg

DRUGS (7)
  1. BELOC ZOK [Suspect]
     Indication: HYPERTENSION
     Dosage: 95 MG DAILY PO
     Route: 048
     Dates: start: 20020101
  2. INSULIN [Suspect]
     Indication: DIABETES MELLITUS
     Dosage: 36 IU DAILY SQ
     Route: 058
     Dates: start: 20030201
  3. SEMILENTE MC [Suspect]
     Indication: DIABETES MELLITUS
     Dosage: 16 IG DAILY SQ
     Route: 058
     Dates: start: 20030201
  4. ADALAT [Concomitant]
  5. BLOPRESS [Concomitant]
  6. INSULIN [Concomitant]
  7. ISOSORBIDE DINITRATE [Concomitant]

REACTIONS (3)
  - DRUG INTERACTION [None]
  - LOSS OF CONSCIOUSNESS [None]
  - SHOCK HYPOGLYCAEMIC [None]
